FAERS Safety Report 5472037-5 (Version None)
Quarter: 2007Q3

REPORT INFORMATION
  Report Type: 
  Country: None (occurrence: None)
  Receive Date: 20070928
  Receipt Date: 20070918
  Transmission Date: 20080115
  Serious: Yes (Other)
  Sender: FDA-Public Use
  Company Number: FR-PFIZER INC-2007078073

PATIENT
  Age: 70 Year
  Sex: Female

DRUGS (1)
  1. AMLOR [Suspect]

REACTIONS (1)
  - SUBILEUS [None]
